FAERS Safety Report 24685324 (Version 1)
Quarter: 2024Q4

REPORT INFORMATION
  Report Type: Spontaneous
  Country: US (occurrence: US)
  Receive Date: 20241202
  Receipt Date: 20241202
  Transmission Date: 20250115
  Serious: Yes (Other)
  Sender: BAYER HEALTHCARE LLC
  Company Number: US-BAYER-2024A165219

PATIENT
  Age: 86 Year
  Sex: Male

DRUGS (7)
  1. ASPIRIN [Suspect]
     Active Substance: ASPIRIN
     Indication: Musculoskeletal disorder
  2. JAKAFI [Suspect]
     Active Substance: RUXOLITINIB
     Indication: Myelofibrosis
     Dosage: 10 MG, BID
     Dates: start: 20230731
  3. JAKAFI [Suspect]
     Active Substance: RUXOLITINIB
     Indication: Myelofibrosis
     Dosage: 10 MG, BID
     Route: 048
     Dates: start: 20230731
  4. JAKAFI [Suspect]
     Active Substance: RUXOLITINIB
     Indication: Myelofibrosis
     Dosage: 10 MG, BID
     Dates: start: 20220525
  5. JAKAFI [Suspect]
     Active Substance: RUXOLITINIB
     Indication: Myelofibrosis
     Dosage: 10 MG, BID
     Route: 048
     Dates: start: 202206
  6. JAKAFI [Suspect]
     Active Substance: RUXOLITINIB
     Indication: Myelofibrosis
     Dosage: 10 MG, BID
     Route: 048
  7. Methyl b complex [Concomitant]

REACTIONS (25)
  - Gastric ulcer haemorrhage [None]
  - Abdominal pain upper [None]
  - COVID-19 [None]
  - Muscular weakness [None]
  - Arthralgia [None]
  - Musculoskeletal disorder [None]
  - Pulmonary pain [None]
  - Gait disturbance [None]
  - Musculoskeletal discomfort [None]
  - Weight decreased [None]
  - Musculoskeletal chest pain [None]
  - Inflammation [None]
  - Productive cough [None]
  - Poor quality sleep [None]
  - Faeces discoloured [None]
  - Pyrexia [None]
  - Hypophagia [None]
  - White blood cell count decreased [None]
  - Abnormal loss of weight [None]
  - Product dose omission issue [None]
  - Intentional dose omission [None]
  - Diarrhoea [None]
  - Dizziness [None]
  - Red blood cell count decreased [None]
  - Haemoglobin decreased [None]

NARRATIVE: CASE EVENT DATE: 20220101
